FAERS Safety Report 12603686 (Version 1)
Quarter: 2016Q3

REPORT INFORMATION
  Report Type: Report from Study
  Country: JP (occurrence: JP)
  Receive Date: 20160728
  Receipt Date: 20160728
  Transmission Date: 20161109
  Serious: Yes (Death, Hospitalization, Other)
  Sender: FDA-Public Use
  Company Number: JP-MERCK-1208JPN008966

PATIENT
  Age: 41 Year
  Sex: Male

DRUGS (16)
  1. ISENTRESS [Suspect]
     Active Substance: RALTEGRAVIR POTASSIUM
     Indication: HIV INFECTION
     Dosage: 800 MG, /DAY. DIVIDED DOSE FREQUENCY UNKNOWN
     Route: 048
     Dates: start: 20110401, end: 20140703
  2. MICAMLO [Concomitant]
     Active Substance: AMLODIPINE BESYLATE\TELMISARTAN
     Indication: HYPERTENSION
     Dosage: 1 DF, QD
     Route: 048
     Dates: start: 20110204, end: 20150820
  3. TERNELIN [Concomitant]
     Active Substance: TIZANIDINE
     Indication: TENSION HEADACHE
     Dosage: 1 DF, BID
     Route: 048
     Dates: start: 20101203, end: 20150820
  4. ROHYPNOL [Concomitant]
     Active Substance: FLUNITRAZEPAM
     Indication: INSOMNIA
     Dosage: 2 MG, QD
     Route: 048
     Dates: start: 20111125, end: 20121025
  5. MYONAL [Concomitant]
     Active Substance: EPERISONE HYDROCHLORIDE
     Indication: TENSION HEADACHE
     Dosage: 50 MG, BID
     Route: 048
     Dates: start: 20110124, end: 20120220
  6. MICARDIS [Concomitant]
     Active Substance: TELMISARTAN
     Indication: HYPERTENSION
     Dosage: 20 MG, BID
     Route: 048
     Dates: start: 20110419, end: 20150820
  7. TAKEPRON [Concomitant]
     Active Substance: LANSOPRAZOLE
     Indication: GASTRITIS
     Dosage: 15 MG, QD
     Route: 048
     Dates: start: 20101129, end: 20150820
  8. HIRNAMIN (LEVOMEPROMAZINE MALEATE) [Concomitant]
     Active Substance: LEVOMEPROMAZINE MALEATE
     Indication: INSOMNIA
     Dosage: 5 MG, QD
     Route: 048
     Dates: start: 20111216, end: 20120607
  9. TRUVADA [Concomitant]
     Active Substance: EMTRICITABINE\TENOFOVIR DISOPROXIL FUMARATE
     Indication: HIV INFECTION
     Dosage: 1 DF, /DAY. DIVIDED DOSE FREQUENCY UNKNOWN
     Route: 048
     Dates: start: 20091017, end: 20150820
  10. MUCOSTA [Concomitant]
     Active Substance: REBAMIPIDE
     Indication: GASTRITIS
     Dosage: 100 MG, BID
     Route: 048
     Dates: start: 20100528, end: 20150820
  11. LENDORMIN D [Concomitant]
     Active Substance: BROTIZOLAM
     Indication: INSOMNIA
     Dosage: 0.25 MG, QD
     Route: 048
     Dates: start: 20111125, end: 20120322
  12. TRYPTANOL [Concomitant]
     Active Substance: AMITRIPTYLINE
     Indication: TENSION HEADACHE
     Dosage: 10 MG, QD
     Route: 048
     Dates: start: 20101213, end: 20120220
  13. ARTIST [Concomitant]
     Active Substance: CARVEDILOL
     Indication: CARDIAC FAILURE CHRONIC
     Dosage: 2.5 MG, BID
     Route: 048
     Dates: start: 20110321, end: 20150820
  14. RENIVACE TABLETS 5 [Concomitant]
     Active Substance: ENALAPRIL
     Indication: CARDIAC FAILURE CHRONIC
     Dosage: 5 MG, BID
     Route: 048
     Dates: start: 20110517, end: 20150820
  15. MIGSIS [Concomitant]
     Active Substance: LOMERIZINE HYDROCHLORIDE
     Indication: MIGRAINE
     Dosage: 5 MG, BID
     Route: 048
     Dates: start: 20101112, end: 20150820
  16. MYSLEE [Concomitant]
     Active Substance: ZOLPIDEM TARTRATE
     Indication: INSOMNIA
     Dosage: 10 MG, QD
     Route: 048
     Dates: start: 2008, end: 20120830

REACTIONS (5)
  - Intentional overdose [Recovered/Resolved]
  - Overdose [Fatal]
  - Suicidal ideation [Unknown]
  - Sinusitis [Not Recovered/Not Resolved]
  - Pneumonia aspiration [Fatal]

NARRATIVE: CASE EVENT DATE: 20120217
